FAERS Safety Report 4565477-X (Version None)
Quarter: 2005Q1

REPORT INFORMATION
  Report Type: 
  Country: None (occurrence: None)
  Receive Date: 20050125
  Receipt Date: 20050125
  Transmission Date: 20050727
  Serious: Yes (Hospitalization)
  Sender: FDA-Public Use
  Company Number: None

PATIENT
  Sex: Female
  Weight: 54.8 kg

DRUGS (1)
  1. OVCON-35 [Suspect]
     Indication: CONTRACEPTION
     Dosage: DAILY  ORAL
     Route: 048

REACTIONS (3)
  - ASTHENIA [None]
  - FACIAL PALSY [None]
  - ISCHAEMIC STROKE [None]
